FAERS Safety Report 13512999 (Version 1)
Quarter: 2017Q2

REPORT INFORMATION
  Report Type: Spontaneous
  Country: US (occurrence: US)
  Receive Date: 20170504
  Receipt Date: 20170504
  Transmission Date: 20170830
  Serious: No
  Sender: FDA-Public Use
  Company Number: US-ABBVIE-16P-163-1631199-00

PATIENT
  Age: 82 Year
  Sex: Male

DRUGS (1)
  1. ANDROGEL [Suspect]
     Active Substance: TESTOSTERONE
     Indication: PRODUCT USED FOR UNKNOWN INDICATION
     Dosage: 2 PUMPS
     Route: 061

REACTIONS (2)
  - Pain [Recovered/Resolved]
  - Laceration [Not Recovered/Not Resolved]

NARRATIVE: CASE EVENT DATE: 201605
